FAERS Safety Report 5159162-3 (Version None)
Quarter: 2006Q4

REPORT INFORMATION
  Report Type: 
  Country: None (occurrence: None)
  Receive Date: 20061116
  Receipt Date: 20061106
  Transmission Date: 20070319
  Serious: Yes (Death)
  Sender: FDA-Public Use
  Company Number: DEWYE189011OCT06

PATIENT
  Age: 69 Year
  Sex: Male

DRUGS (5)
  1. TYGACIL [Suspect]
     Dosage: 50 MG 2X PER 1 DAY INTRAVENOUS
     Route: 042
     Dates: start: 20061007, end: 20061009
  2. MEROPENEM (MEROPENEM) [Concomitant]
  3. BAYPEN (MEZLOCILLIN SODIUM) [Concomitant]
  4. METRONIDAZOLE [Concomitant]
  5. DIFLUCAN [Concomitant]

REACTIONS (2)
  - MULTI-ORGAN FAILURE [None]
  - SEPTIC SHOCK [None]
